FAERS Safety Report 8425442-9 (Version None)
Quarter: 2012Q2

REPORT INFORMATION
  Report Type: 
  Country: None (occurrence: None)
  Receive Date: 20120604
  Receipt Date: 20120521
  Transmission Date: 20120825
  Serious: Yes (Death, Other)
  Sender: FDA-Public Use
  Company Number: WAES 1205ESP00029

PATIENT
  Age: 14 Year
  Sex: Male

DRUGS (5)
  1. CANCIDAS [Suspect]
     Indication: ASPERGILLOSIS
     Dosage: IV
     Route: 042
     Dates: start: 20101201, end: 20110301
  2. CANCIDAS [Suspect]
     Indication: RHINITIS
     Dosage: IV
     Route: 042
     Dates: start: 20101201, end: 20110301
  3. CYCLOPHOSPHAMIDE [Concomitant]
  4. AMPHOTERICIN B (+) CHOLESTEROL (+) DISTE [Concomitant]
  5. VORICONAZOLE [Suspect]
     Indication: PROPHYLAXIS
     Dosage: IV
     Route: 042

REACTIONS (26)
  - HYPOPROTEINAEMIA [None]
  - COMPLICATIONS OF BONE MARROW TRANSPLANT [None]
  - TRANSAMINASES INCREASED [None]
  - HEPATOTOXICITY [None]
  - RESPIRATORY DISORDER [None]
  - ESCHERICHIA SEPSIS [None]
  - SIMPLEX VIRUS TEST POSITIVE [None]
  - APLASIA [None]
  - GRAFT VERSUS HOST DISEASE IN SKIN [None]
  - INTRACRANIAL PRESSURE INCREASED [None]
  - HYPOTENSION [None]
  - DECUBITUS ULCER [None]
  - ANAPHYLACTIC REACTION [None]
  - CLOSTRIDIUM TEST POSITIVE [None]
  - FUNGAL TEST POSITIVE [None]
  - CARDIO-RESPIRATORY ARREST [None]
  - PNEUMOTHORAX [None]
  - ACIDOSIS [None]
  - SUBCUTANEOUS EMPHYSEMA [None]
  - STAPHYLOCOCCUS TEST POSITIVE [None]
  - BRADYCARDIA [None]
  - RENAL FAILURE [None]
  - WEIGHT INCREASED [None]
  - RESPIRATORY DISTRESS [None]
  - PYREXIA [None]
  - BONE MARROW TRANSPLANT [None]
